FAERS Safety Report 6511108-9 (Version None)
Quarter: 2009Q4

REPORT INFORMATION
  Report Type: 
  Country: None (occurrence: None)
  Receive Date: 20091217
  Receipt Date: 20091204
  Transmission Date: 20100525
  Serious: Yes (Other)
  Sender: FDA-Public Use
  Company Number: TRP_06640_2009

PATIENT
  Sex: Female
  Weight: 108.9086 kg

DRUGS (3)
  1. RIBAVARIN [Suspect]
     Indication: HEPATITIS C
     Dosage: 1200 MG, DAILY
     Dates: start: 20090615
  2. PEGASYS [Suspect]
     Indication: HEPATITIS C
     Dosage: 180 UG 1X/ WEEK
     Dates: start: 20090615
  3. LORTAB [Suspect]
     Indication: RHEUMATOID ARTHRITIS
     Dosage: DF

REACTIONS (19)
  - CONDITION AGGRAVATED [None]
  - CONFUSIONAL STATE [None]
  - CONTUSION [None]
  - DECREASED APPETITE [None]
  - DEPRESSION [None]
  - DRUG INEFFECTIVE [None]
  - DRY SKIN [None]
  - HEART RATE IRREGULAR [None]
  - INJECTION SITE HAEMATOMA [None]
  - INSOMNIA [None]
  - LOCALISED OEDEMA [None]
  - PAIN IN EXTREMITY [None]
  - PALPITATIONS [None]
  - PRURITUS [None]
  - RHEUMATOID ARTHRITIS [None]
  - SENSORY DISTURBANCE [None]
  - SUICIDAL IDEATION [None]
  - URTICARIA [None]
  - WEIGHT DECREASED [None]
